FAERS Safety Report 13230287 (Version 3)
Quarter: 2018Q2

REPORT INFORMATION
  Report Type: Report from Study
  Country: CO (occurrence: CO)
  Receive Date: 20170214
  Receipt Date: 20180628
  Transmission Date: 20180711
  Serious: Yes (Hospitalization, Other)
  Sender: FDA-Public Use
  Company Number: PHHY2017CO022893

PATIENT
  Sex: Female
  Weight: 50 kg

DRUGS (3)
  1. AFINITOR [Suspect]
     Active Substance: EVEROLIMUS
     Indication: BREAST CANCER
     Dosage: 10 MG, QD
     Route: 048
     Dates: start: 20161114, end: 20170125
  2. EXEMESTANE. [Concomitant]
     Active Substance: EXEMESTANE
     Indication: PRODUCT USED FOR UNKNOWN INDICATION
     Route: 065
  3. AFINITOR [Suspect]
     Active Substance: EVEROLIMUS
     Dosage: 10 MG, QD
     Route: 048
     Dates: end: 20180606

REACTIONS (14)
  - Nausea [Unknown]
  - Glycosylated haemoglobin increased [Unknown]
  - Thyroid disorder [Unknown]
  - Feeling of despair [Unknown]
  - Pain [Unknown]
  - Decreased appetite [Unknown]
  - Arthritis [Unknown]
  - Metastases to bone [Unknown]
  - Herpes virus infection [Recovering/Resolving]
  - Blood glucose increased [Unknown]
  - Blood triglycerides increased [Unknown]
  - Malaise [Unknown]
  - Headache [Unknown]
  - Spinal cord injury [Unknown]
